FAERS Safety Report 8059672-5 (Version None)
Quarter: 2012Q1

REPORT INFORMATION
  Report Type: 
  Country: None (occurrence: None)
  Receive Date: 20120120
  Receipt Date: 20120116
  Transmission Date: 20120608
  Serious: Yes (Other)
  Sender: FDA-Public Use
  Company Number: PHHY2012CA001441

PATIENT
  Sex: Female

DRUGS (2)
  1. ZOLEDRONOC ACID [Suspect]
     Indication: OSTEOPOROSIS
     Dosage: UNK UKN, UNK
     Route: 042
     Dates: start: 20101104
  2. ZOLEDRONOC ACID [Suspect]
     Dosage: UNK UKN, UNK
     Route: 042
     Dates: start: 20120104

REACTIONS (8)
  - HAEMATOMA [None]
  - INJURY [None]
  - BLOOD PRESSURE SYSTOLIC INCREASED [None]
  - INFUSION SITE EXTRAVASATION [None]
  - JOINT DISLOCATION [None]
  - PROCEDURAL COMPLICATION [None]
  - FALL [None]
  - PRODUCTIVE COUGH [None]
